FAERS Safety Report 16049441 (Version 2)
Quarter: 2019Q2

REPORT INFORMATION
  Report Type: Spontaneous
  Country: US (occurrence: US)
  Receive Date: 20190307
  Receipt Date: 20190401
  Transmission Date: 20190711
  Serious: Yes (Hospitalization, Other)
  Sender: FDA-Public Use
  Company Number: US-VIFOR (INTERNATIONAL) INC.-VIT-2019-01976

PATIENT
  Sex: Male

DRUGS (3)
  1. VELTASSA [Suspect]
     Active Substance: PATIROMER
  2. VELTASSA [Suspect]
     Active Substance: PATIROMER
     Indication: HYPERKALAEMIA
  3. VELTASSA [Suspect]
     Active Substance: PATIROMER

REACTIONS (3)
  - Small intestinal obstruction [Recovered/Resolved]
  - Blood potassium increased [Recovering/Resolving]
  - Transplantation complication [Unknown]

NARRATIVE: CASE EVENT DATE: 201902
